FAERS Safety Report 11479490 (Version 2)
Quarter: 2015Q4

REPORT INFORMATION
  Report Type: Spontaneous
  Country: HR (occurrence: HR)
  Receive Date: 20150909
  Receipt Date: 20151015
  Transmission Date: 20160304
  Serious: Yes (Death, Hospitalization, Other)
  Sender: FDA-Public Use
  Company Number: HR-INCYTE CORPORATION-2015IN004314

PATIENT
  Age: 63 Year
  Sex: Female

DRUGS (13)
  1. LITALIR [Concomitant]
     Active Substance: HYDROXYUREA
     Indication: MYELOFIBROSIS
     Dosage: UNK
     Dates: start: 201201, end: 20150602
  2. BYOL COR [Concomitant]
     Active Substance: BISOPROLOL FUMARATE
     Indication: HYPERTENSION
     Dosage: UNK
  3. TOMID//TORASEMIDE [Concomitant]
     Indication: HYPERTENSION
     Dosage: UNK
  4. SUCRALFAT [Concomitant]
     Active Substance: SUCRALFATE
     Indication: PRODUCT USED FOR UNKNOWN INDICATION
     Dosage: UNK
     Route: 065
  5. DORETA [Concomitant]
     Indication: PRODUCT USED FOR UNKNOWN INDICATION
     Dosage: UNK
     Route: 065
  6. JAKAFI [Suspect]
     Active Substance: RUXOLITINIB
     Indication: MYELOFIBROSIS
     Dosage: 15 MG, QD (1 X 15 MG)
     Route: 048
     Dates: start: 20130810, end: 20150602
  7. FURSEMID [Concomitant]
     Active Substance: FUROSEMIDE
     Indication: PRODUCT USED FOR UNKNOWN INDICATION
     Dosage: UNK
     Route: 065
  8. FRESUBIN                           /07459901/ [Concomitant]
     Indication: PRODUCT USED FOR UNKNOWN INDICATION
     Dosage: UNK
     Route: 065
  9. ALLOPURINOL. [Concomitant]
     Active Substance: ALLOPURINOL
     Indication: MYELOFIBROSIS
     Dosage: UNK
  10. NOLPAZA (PANTOPRAZOLE SODIUM) [Concomitant]
     Indication: PRODUCT USED FOR UNKNOWN INDICATION
     Dosage: UNK
     Route: 065
  11. DALNEVA [Concomitant]
     Indication: HYPERTENSION
     Dosage: UNK
  12. FEXOFENADINE [Concomitant]
     Active Substance: FEXOFENADINE\FEXOFENADINE HYDROCHLORIDE
     Indication: PRODUCT USED FOR UNKNOWN INDICATION
     Dosage: UNK
     Route: 065
  13. KCL [Concomitant]
     Active Substance: POTASSIUM CHLORIDE
     Indication: PRODUCT USED FOR UNKNOWN INDICATION
     Dosage: UNK
     Route: 065

REACTIONS (19)
  - Pain [Unknown]
  - Haemoglobin decreased [Unknown]
  - Cholecystitis acute [Recovered/Resolved]
  - Leukocytosis [Unknown]
  - Tuberculosis [Fatal]
  - Gallbladder empyema [Recovered/Resolved]
  - Platelet count decreased [Unknown]
  - Secretion discharge [Unknown]
  - Procedural haemorrhage [Recovered/Resolved]
  - Cellulitis [Unknown]
  - Hepatomegaly [Unknown]
  - Osteitis [Unknown]
  - Anaemia [Unknown]
  - Lymph node tuberculosis [Unknown]
  - Gamma-glutamyltransferase increased [Unknown]
  - Gallbladder perforation [Unknown]
  - Rash [Unknown]
  - International normalised ratio increased [Unknown]
  - Inflammation [Unknown]

NARRATIVE: CASE EVENT DATE: 20150407
